FAERS Safety Report 9870300 (Version 1)
Quarter: 2014Q1

REPORT INFORMATION
  Report Type: Spontaneous
  Country: CA (occurrence: CA)
  Receive Date: 20140205
  Receipt Date: 20140205
  Transmission Date: 20141002
  Serious: Yes (Other)
  Sender: FDA-Public Use
  Company Number: CA-VERTEX PHARMACEUTICALS INC-2014-000490

PATIENT
  Age: 57 Year
  Sex: Female

DRUGS (6)
  1. INCIVEK [Suspect]
     Indication: HEPATITIS C
     Dosage: 750 MG, TID
     Route: 048
  2. PEGASYS [Suspect]
     Dosage: 180 ?G, QW
     Route: 058
  3. PEGASYS [Suspect]
     Dosage: 180 ?G, QW
     Route: 058
  4. PEGASYS [Suspect]
     Dosage: UNK
     Route: 058
  5. RIBAVIRIN [Suspect]
     Dosage: 100 MG, UNK
     Route: 048
  6. RIBAVIRIN [Suspect]
     Dosage: 100 MG, UNK
     Route: 048

REACTIONS (6)
  - Asthma [Unknown]
  - Hepatitis [Unknown]
  - Urinary tract infection [Unknown]
  - Neutropenia [Unknown]
  - White blood cell count decreased [Unknown]
  - Haemoglobin decreased [Unknown]
